FAERS Safety Report 15707879 (Version 1)
Quarter: 2018Q4

REPORT INFORMATION
  Report Type: Spontaneous
  Country: CN (occurrence: CN)
  Receive Date: 20181211
  Receipt Date: 20181211
  Transmission Date: 20190205
  Serious: Yes (Other)
  Sender: FDA-Public Use
  Company Number: CN-ROCHE-2222175

PATIENT
  Age: 57 Year
  Sex: Male
  Weight: 75 kg

DRUGS (1)
  1. XELODA [Suspect]
     Active Substance: CAPECITABINE
     Indication: CANCER SURGERY
     Route: 048
     Dates: start: 20180924, end: 20181001

REACTIONS (6)
  - Vomiting [Unknown]
  - Facial paralysis [Unknown]
  - Nausea [Unknown]
  - Dizziness [Unknown]
  - Poverty of speech [Unknown]
  - Discomfort [Unknown]

NARRATIVE: CASE EVENT DATE: 20180926
